FAERS Safety Report 7898249-9 (Version None)
Quarter: 2011Q4

REPORT INFORMATION
  Report Type: 
  Country: None (occurrence: None)
  Receive Date: 20111107
  Receipt Date: 20111101
  Transmission Date: 20120403
  Serious: Yes (Other)
  Sender: FDA-Public Use
  Company Number: BR-VIIV HEALTHCARE LIMITED-A0951921A

PATIENT
  Sex: Female
  Weight: 67 kg

DRUGS (4)
  1. LAMIVUDINE [Suspect]
     Indication: HIV INFECTION
  2. RIFAMPIN [Concomitant]
  3. RALTEGRAVIR [Suspect]
     Indication: HIV INFECTION
     Route: 065
  4. TENOFOVIR DISOPROXIL FUMARATE [Suspect]
     Indication: HIV INFECTION
     Route: 065

REACTIONS (1)
  - NEUTROPENIA [None]
